FAERS Safety Report 8947948 (Version 1)
Quarter: 2012Q4

REPORT INFORMATION
  Report Type: Spontaneous
  Country: US (occurrence: None)
  Receive Date: 20121127
  Receipt Date: 20121127
  Transmission Date: 20130627
  Serious: Yes (Hospitalization)
  Sender: FDA-Public Use
  Company Number: SP06224

PATIENT
  Age: 63 Year
  Sex: Male

DRUGS (3)
  1. RIFAXIMIN [Suspect]
     Indication: LIVER CIRRHOSIS
     Dosage: 1100 mg (550 mg, 2 in 1 D), Oral
     Route: 048
     Dates: start: 20120524
  2. LASIX [Concomitant]
  3. SPIRONOLACTONE [Concomitant]

REACTIONS (1)
  - Renal failure acute [None]
